FAERS Safety Report 5399901-X (Version None)
Quarter: 2007Q3

REPORT INFORMATION
  Report Type: 
  Country: None (occurrence: None)
  Receive Date: 20070724
  Receipt Date: 20070711
  Transmission Date: 20080115
  Serious: Yes (Other)
  Sender: FDA-Public Use
  Company Number: B0479698A

PATIENT
  Sex: 0

DRUGS (1)
  1. CHLORPROMAZINE HYDROCHLORIDE [Suspect]

REACTIONS (1)
  - HEPATOCELLULAR DAMAGE [None]
